FAERS Safety Report 8097230-7 (Version None)
Quarter: 2012Q1

REPORT INFORMATION
  Report Type: 
  Country: None (occurrence: None)
  Receive Date: 20120128
  Receipt Date: 20110715
  Transmission Date: 20120608
  Serious: No
  Sender: FDA-Public Use
  Company Number: US-ABBOTT-11P-163-0839432-00

PATIENT
  Age: 45 Year
  Sex: Female

DRUGS (9)
  1. HUMIRA [Suspect]
     Indication: PSORIATIC ARTHROPATHY
     Dates: start: 20110501
  2. CYMBALTA [Concomitant]
     Indication: FIBROMYALGIA
  3. METHOTREXATE [Concomitant]
     Indication: ARTHRITIS
     Dosage: 5 TABLETS WEEKLY
  4. ESTEROL [Concomitant]
     Indication: HORMONE REPLACEMENT THERAPY
     Dosage: 2.5MG DAILY
  5. PROGESTERONE [Concomitant]
     Indication: HORMONE REPLACEMENT THERAPY
     Dosage: 100MG DAILY
  6. LIOTHYRONINE SODIUM [Concomitant]
     Indication: THYROID DISORDER
     Dosage: 30MG DAILY
  7. UNKNOWN SUPPLEMENTS [Concomitant]
     Indication: PRODUCT USED FOR UNKNOWN INDICATION
  8. BUSPAR [Concomitant]
     Indication: ANXIETY
  9. PROGESTERONE [Concomitant]
     Indication: HYSTERECTOMY

REACTIONS (1)
  - INJECTION SITE RASH [None]
